FAERS Safety Report 12738144 (Version 2)
Quarter: 2016Q3

REPORT INFORMATION
  Report Type: Spontaneous
  Country: AU (occurrence: AU)
  Receive Date: 20160912
  Receipt Date: 20160913
  Transmission Date: 20161109
  Serious: Yes (Death)
  Sender: FDA-Public Use
  Company Number: AU-SA-2016SA135334

PATIENT
  Sex: Female

DRUGS (1)
  1. MYOZYME [Suspect]
     Active Substance: ALGLUCOSIDASE ALFA
     Indication: GLYCOGEN STORAGE DISEASE TYPE II
     Route: 042
     Dates: start: 201505, end: 201507

REACTIONS (3)
  - Respiratory disorder [Not Recovered/Not Resolved]
  - Disease progression [Unknown]
  - Death [Fatal]
